FAERS Safety Report 13535886 (Version 1)
Quarter: 2017Q2

REPORT INFORMATION
  Report Type: Report from Study
  Country: GB (occurrence: GB)
  Receive Date: 20170511
  Receipt Date: 20170511
  Transmission Date: 20170830
  Serious: Yes (Other)
  Sender: FDA-Public Use
  Company Number: GB-ACCORD-051200

PATIENT
  Age: 10 Month

DRUGS (2)
  1. TOPOTECAN [Suspect]
     Active Substance: TOPOTECAN HYDROCHLORIDE
     Indication: RETINOBLASTOMA
     Dosage: 3 CYCLICAL
     Route: 013
  2. MELPHALAN. [Suspect]
     Active Substance: MELPHALAN
     Indication: RETINOBLASTOMA
     Dosage: 3 IAC TREATMENTS WERE GIVEN AS 3, 3 AND 4
     Route: 013

REACTIONS (2)
  - Off label use [Unknown]
  - Autonomic neuropathy [Unknown]
